FAERS Safety Report 16057154 (Version 1)
Quarter: 2019Q1

REPORT INFORMATION
  Report Type: Spontaneous
  Country: RU (occurrence: RU)
  Receive Date: 20190311
  Receipt Date: 20190311
  Transmission Date: 20190418
  Serious: Yes (Other)
  Sender: FDA-Public Use
  Company Number: IND-RU-009507513-1903RUS003204

PATIENT
  Age: 85 Year
  Sex: Female
  Weight: 55 kg

DRUGS (3)
  1. KETAMINE HYDROCHLORIDE. [Suspect]
     Active Substance: KETAMINE HYDROCHLORIDE
     Indication: INDUCTION OF ANAESTHESIA
     Dosage: 200MG SINGLE DOSE/20MG, SINGLE DOSE/5MG SINGLE DOSE
     Dates: start: 20190108, end: 20190108
  2. DIPRIVAN [Suspect]
     Active Substance: PROPOFOL
     Indication: INDUCTION OF ANAESTHESIA
     Dosage: 200MG SINGLE DOSE/20MG, SINGLE DOSE/5MG SINGLE DOSE
     Dates: start: 20190108, end: 20190108
  3. ESMERON [Suspect]
     Active Substance: ROCURONIUM BROMIDE
     Indication: INDUCTION OF ANAESTHESIA
     Dosage: 200MG SINGLE DOSE/20MG, SINGLE DOSE/5MG SINGLE DOSE
     Dates: start: 20190108, end: 20190108

REACTIONS (2)
  - Rash erythematous [Recovered/Resolved]
  - Urticaria [Recovered/Resolved]

NARRATIVE: CASE EVENT DATE: 20190108
